FAERS Safety Report 5710522-9 (Version None)
Quarter: 2008Q2

REPORT INFORMATION
  Report Type: 
  Country: None (occurrence: None)
  Receive Date: 20080415
  Receipt Date: 20080408
  Transmission Date: 20081010
  Serious: Yes (Hospitalization)
  Sender: FDA-Public Use
  Company Number: 2008SP002432

PATIENT
  Age: 53 Year
  Sex: Female

DRUGS (4)
  1. PEG-INTRON (PEGINTERFERON ALFA-2B) [Suspect]
     Indication: HEPATITIS C
     Dates: start: 20071019, end: 20080131
  2. PEG-INTRON (PEGINTERFERON ALFA-2B) [Suspect]
     Indication: HEPATITIS C
     Dates: start: 20080404
  3. REBETOL [Suspect]
     Indication: HEPATITIS C
     Dosage: PO
     Route: 048
     Dates: start: 20071019, end: 20080131
  4. REBETOL [Suspect]
     Indication: HEPATITIS C
     Dosage: PO
     Route: 048
     Dates: start: 20080404

REACTIONS (4)
  - CHOLELITHIASIS [None]
  - HEPATIC PAIN [None]
  - INFLUENZA LIKE ILLNESS [None]
  - RED BLOOD CELL COUNT DECREASED [None]
